FAERS Safety Report 9372205 (Version 2)
Quarter: 2013Q3

REPORT INFORMATION
  Report Type: Spontaneous
  Country: SE (occurrence: SE)
  Receive Date: 20130627
  Receipt Date: 20130723
  Transmission Date: 20140515
  Serious: Yes (Hospitalization, Other)
  Sender: FDA-Public Use
  Company Number: SE-ASTRAZENECA-2013SE26189

PATIENT
  Age: 16 Year
  Sex: Female

DRUGS (4)
  1. MERONEM [Suspect]
     Route: 042
     Dates: start: 20130123, end: 20130130
  2. ARTESUNATE [Suspect]
     Route: 042
     Dates: start: 20130123, end: 20130130
  3. DRUG NOT SHOWN [Suspect]
  4. DOXYFERM (RATIOPHARM GMBH) [Concomitant]
     Dates: start: 20130130, end: 20130502

REACTIONS (2)
  - Anaemia [Unknown]
  - Hepatic function abnormal [Unknown]
